FAERS Safety Report 6760344-5 (Version None)
Quarter: 2010Q2

REPORT INFORMATION
  Report Type: 
  Country: None (occurrence: None)
  Receive Date: 20100608
  Receipt Date: 20100531
  Transmission Date: 20101027
  Serious: Yes (Hospitalization)
  Sender: FDA-Public Use
  Company Number: DE-MPIJNJ-2010-02861

PATIENT

DRUGS (5)
  1. VELCADE [Suspect]
     Indication: MULTIPLE MYELOMA
     Dosage: 2.5 MG, UNK
     Route: 042
     Dates: start: 20100115, end: 20100419
  2. MELPHALAN [Suspect]
     Indication: MULTIPLE MYELOMA
     Dosage: 16 MG, UNK
     Route: 042
     Dates: start: 20100412, end: 20100416
  3. DEXAMETHASONE [Suspect]
     Indication: MULTIPLE MYELOMA
  4. PREDNISONE [Concomitant]
     Dosage: UNK
     Dates: start: 20100115, end: 20100419
  5. ZOFRAN [Concomitant]
     Dosage: 8 MG, UNK
     Route: 042
     Dates: start: 20100118, end: 20100416

REACTIONS (1)
  - GENERAL PHYSICAL HEALTH DETERIORATION [None]
